FAERS Safety Report 15393425 (Version 1)
Quarter: 2018Q3

REPORT INFORMATION
  Report Type: Other
  Country: US (occurrence: US)
  Receive Date: 20180917
  Receipt Date: 20180917
  Transmission Date: 20181010
  Serious: No
  Sender: FDA-Public Use
  Company Number: US-LEADIANT BIOSCIENCES INC-2017STPI000814

PATIENT
  Sex: Female

DRUGS (8)
  1. MULTIVITAMIN                       /00097801/ [Concomitant]
     Active Substance: VITAMINS
  2. MATULANE [Suspect]
     Active Substance: PROCARBAZINE HYDROCHLORIDE
     Indication: BRAIN NEOPLASM MALIGNANT
     Dosage: 100 MG, QD
     Route: 048
     Dates: start: 20170601
  3. CALCIUM [Concomitant]
     Active Substance: CALCIUM
  4. LOMUSTINE. [Concomitant]
     Active Substance: LOMUSTINE
  5. KEPPRA [Concomitant]
     Active Substance: LEVETIRACETAM
  6. BENICAR [Concomitant]
     Active Substance: OLMESARTAN MEDOXOMIL
  7. CLONAZEPAM. [Concomitant]
     Active Substance: CLONAZEPAM
  8. TOPAMAX [Concomitant]
     Active Substance: TOPIRAMATE

REACTIONS (1)
  - Constipation [Not Recovered/Not Resolved]
